FAERS Safety Report 11277047 (Version 5)
Quarter: 2016Q1

REPORT INFORMATION
  Report Type: Report from Study
  Country: PH (occurrence: PH)
  Receive Date: 20150716
  Receipt Date: 20160122
  Transmission Date: 20160525
  Serious: Yes (Life-Threatening, Hospitalization, Disabling, Other)
  Sender: FDA-Public Use
  Company Number: PH-ASTRAZENECA-2015SE69033

PATIENT
  Age: 23021 Day
  Sex: Male

DRUGS (7)
  1. TICAGRELOR [Suspect]
     Active Substance: TICAGRELOR
     Indication: CARDIOVASCULAR EVENT PROPHYLAXIS
     Dosage: LOADING DOSE
     Route: 048
     Dates: start: 20150108
  2. ASPILET EC [Concomitant]
     Route: 048
     Dates: start: 20150412
  3. LIFEZAR [Concomitant]
  4. INSULIN [Concomitant]
     Active Substance: INSULIN NOS
  5. TICAGRELOR [Suspect]
     Active Substance: TICAGRELOR
     Indication: CARDIOVASCULAR EVENT PROPHYLAXIS
     Dosage: MAINTENANCE DOSE
     Route: 048
     Dates: start: 20150109, end: 20150410
  6. SIMVASTATIN. [Concomitant]
     Active Substance: SIMVASTATIN
  7. METFORMIN [Concomitant]
     Active Substance: METFORMIN HYDROCHLORIDE

REACTIONS (1)
  - Drug-induced liver injury [Not Recovered/Not Resolved]

NARRATIVE: CASE EVENT DATE: 20150412
